FAERS Safety Report 21453238 (Version 1)
Quarter: 2022Q4

REPORT INFORMATION
  Report Type: Spontaneous
  Country: US (occurrence: None)
  Receive Date: 20221012
  Receipt Date: 20221012
  Transmission Date: 20230113
  Serious: No
  Sender: FDA-Public Use
  Company Number: None

PATIENT
  Age: 84 Year
  Sex: Female
  Weight: 76.2 kg

DRUGS (10)
  1. LENALIDOMIDE [Suspect]
     Active Substance: LENALIDOMIDE
     Indication: Plasma cell myeloma
     Dosage: FREQUENCY : DAILY;?
     Route: 048
     Dates: start: 20220718
  2. ASPIRIN [Concomitant]
  3. CALCIUM + VITAMIN D3 [Concomitant]
  4. CITALOPRAM [Concomitant]
  5. DEXAMETHASONE [Concomitant]
  6. DONEPEZIL [Concomitant]
  7. GLIPIZIDE [Concomitant]
  8. IRON [Concomitant]
  9. MELATONIN [Concomitant]
  10. MULTIVITAMIN [Concomitant]

REACTIONS (2)
  - Blood glucose increased [None]
  - Renal function test abnormal [None]
